FAERS Safety Report 8500391-6 (Version None)
Quarter: 2012Q3

REPORT INFORMATION
  Report Type: 
  Country: None (occurrence: None)
  Receive Date: 20120703
  Receipt Date: 20120703
  Transmission Date: 20120928
  Serious: No
  Sender: FDA-Public Use
  Company Number: None

PATIENT
  Sex: Male
  Weight: 77.1115 kg

DRUGS (3)
  1. BYSTOLIC [Concomitant]
  2. AMPHETAMINE SULFATE [Suspect]
     Indication: ATTENTION DEFICIT/HYPERACTIVITY DISORDER
     Dosage: 30 MF BID PO
     Route: 048
     Dates: start: 20120429, end: 20120529
  3. SYNTHROID [Concomitant]

REACTIONS (6)
  - HEADACHE [None]
  - DRUG INEFFECTIVE [None]
  - PRODUCT SUBSTITUTION ISSUE [None]
  - PALPITATIONS [None]
  - FATIGUE [None]
  - SOMNOLENCE [None]
